FAERS Safety Report 9417005 (Version 3)
Quarter: 2014Q1

REPORT INFORMATION
  Report Type: Report from Study
  Country: JP (occurrence: JP)
  Receive Date: 20130724
  Receipt Date: 20140313
  Transmission Date: 20141002
  Serious: Yes (Other)
  Sender: FDA-Public Use
  Company Number: JP-ROCHE-1252491

PATIENT
  Sex: Male

DRUGS (2)
  1. BEVACIZUMAB [Suspect]
     Indication: RETINOPATHY OF PREMATURITY
     Route: 050
  2. BEVACIZUMAB [Suspect]
     Indication: OFF LABEL USE

REACTIONS (2)
  - Cataract [Unknown]
  - Vitreous haemorrhage [Unknown]
